FAERS Safety Report 18671682 (Version 1)
Quarter: 2020Q4

REPORT INFORMATION
  Report Type: Other
  Country: US (occurrence: US)
  Receive Date: 20201229
  Receipt Date: 20201229
  Transmission Date: 20210114
  Serious: Yes (Other)
  Sender: FDA-Public Use
  Company Number: US-ROCHE-1384151

PATIENT
  Age: 40 Year
  Sex: Male
  Weight: 62 kg

DRUGS (14)
  1. XOLAIR [Suspect]
     Active Substance: OMALIZUMAB
  2. CETRIZINE [Concomitant]
     Active Substance: CETIRIZINE HYDROCHLORIDE
     Dosage: 1 TABLET BY MOUTH QD DAILY
     Route: 048
  3. ADVAIR HFA [Concomitant]
     Active Substance: FLUTICASONE PROPIONATE\SALMETEROL XINAFOATE
     Dosage: DOSE: 250 MCG.?1 PUFF DAILY
  4. XOLAIR [Suspect]
     Active Substance: OMALIZUMAB
     Indication: ASTHMA
     Route: 058
  5. XOLAIR [Suspect]
     Active Substance: OMALIZUMAB
  6. XOLAIR [Suspect]
     Active Substance: OMALIZUMAB
     Route: 058
  7. ALBUTEROL SULFATE HFA [Concomitant]
     Active Substance: ALBUTEROL SULFATE
     Dosage: 2 PUFFS INHALE Q4 -6H PRN CHEST SYMPTOMS
  8. FLUTICASONE PROPIONATE. [Concomitant]
     Active Substance: FLUTICASONE PROPIONATE
     Dosage: 2 SQUIRTS IN EACH NOSTRIL OD SPRAY AWAY FROM NASAL SEPTUM , USE DAILY FOR BEST RESULTS
     Route: 045
  9. PROAIR HFA [Concomitant]
     Active Substance: ALBUTEROL SULFATE
     Dosage: 2 PUFFS PO Q4 -6 H AS NEEDED FOR COUGH, WHEEZE OR SHORTNESS OF BREATHE
  10. TRIAMCINOLONE ACETONIDE. [Concomitant]
     Active Substance: TRIAMCINOLONE ACETONIDE
     Indication: ECZEMA
     Dosage: 1 APPLICATION ON THE SKIN BID FOR 5-7 DAYS FOR MODERATE ECZEMA, DO NOT USE ON THE FACE.
     Route: 061
  11. XOLAIR [Suspect]
     Active Substance: OMALIZUMAB
  12. BREO ELLIPTA [Concomitant]
     Active Substance: FLUTICASONE FUROATE\VILANTEROL TRIFENATATE
     Dosage: 1 PUFFS PO QD (DAILY) RINSING MOUTH AFTER EACH USE
     Route: 048
  13. XOLAIR [Suspect]
     Active Substance: OMALIZUMAB
  14. HYDROCORTISONE. [Concomitant]
     Active Substance: HYDROCORTISONE
     Indication: ECZEMA
     Dosage: 1 APPLICATION ON THE SKIN BID (TWICE DAILY) APPLY TO THE AFFECTED AREA TWICE DAILY FOR MILD ECZEMA ,
     Route: 061

REACTIONS (4)
  - Asthma [Unknown]
  - Rhinitis allergic [Unknown]
  - Anaphylactic reaction [Unknown]
  - Conjunctivitis allergic [Unknown]

NARRATIVE: CASE EVENT DATE: 20160219
